FAERS Safety Report 9312634 (Version 1)
Quarter: 2013Q2

REPORT INFORMATION
  Report Type: Spontaneous
  Country: ES (occurrence: ES)
  Receive Date: 20130528
  Receipt Date: 20130528
  Transmission Date: 20140414
  Serious: Yes (Hospitalization, Other)
  Sender: FDA-Public Use
  Company Number: ES-BRISTOL-MYERS SQUIBB COMPANY-18851253

PATIENT
  Age: 55 Year
  Sex: Male

DRUGS (6)
  1. REYATAZ [Suspect]
     Indication: HIV INFECTION
     Dates: start: 20130412
  2. REYATAZ [Suspect]
     Indication: HEPATITIS C
     Dates: start: 20130412
  3. RITONAVIR [Concomitant]
     Indication: HIV INFECTION
  4. RITONAVIR [Concomitant]
     Indication: HEPATITIS C
  5. TELAPREVIR [Concomitant]
     Indication: HIV INFECTION
  6. TELAPREVIR [Concomitant]
     Indication: HEPATITIS C

REACTIONS (3)
  - Nephrolithiasis [Recovered/Resolved]
  - Anaemia [Unknown]
  - Herpes virus infection [Unknown]
